FAERS Safety Report 20960314 (Version 1)
Quarter: 2022Q2

REPORT INFORMATION
  Report Type: Spontaneous
  Country: JP (occurrence: JP)
  Receive Date: 20220615
  Receipt Date: 20220615
  Transmission Date: 20220720
  Serious: No
  Sender: FDA-Public Use
  Company Number: JP-LUPIN PHARMACEUTICALS INC.-2022-08559

PATIENT
  Age: 88 Year
  Sex: Female

DRUGS (5)
  1. AMLODIPINE [Suspect]
     Active Substance: AMLODIPINE BESYLATE
     Indication: Hypertension
     Dosage: 5 MG, QD
     Route: 065
  2. ISOSORBIDE DINITRATE [Suspect]
     Active Substance: ISOSORBIDE DINITRATE
     Indication: Myocardial ischaemia
     Dosage: 40 MG, QD (RETARD FORM)
     Route: 065
  3. SENNOSIDES [Suspect]
     Active Substance: SENNOSIDES
     Indication: Constipation
     Dosage: 36 MG, QD
     Route: 065
  4. TOCOPHEROL [Suspect]
     Active Substance: TOCOPHEROL
     Indication: Myocardial ischaemia
     Dosage: 200 MG, QD
     Route: 065
  5. ELDECALCITOL [Concomitant]
     Active Substance: ELDECALCITOL
     Indication: Vitamin supplementation
     Dosage: 0.75 MICROGRAM, QD
     Route: 065

REACTIONS (1)
  - Cognitive disorder [Recovering/Resolving]
